FAERS Safety Report 17430512 (Version 2)
Quarter: 2020Q1

REPORT INFORMATION
  Report Type: Spontaneous
  Country: US (occurrence: US)
  Receive Date: 20200218
  Receipt Date: 20200305
  Transmission Date: 20200409
  Serious: No
  Sender: FDA-Public Use
  Company Number: US-VERTEX PHARMACEUTICALS-2020-002654

PATIENT
  Age: 25 Year
  Sex: Male

DRUGS (21)
  1. HYPERSAL [Concomitant]
     Active Substance: SODIUM CHLORIDE
     Dosage: UNK
  2. VIMPAT [Concomitant]
     Active Substance: LACOSAMIDE
     Dosage: UNK
  3. DEPAKOTE [Concomitant]
     Active Substance: DIVALPROEX SODIUM
     Dosage: 500MG:1000MG
     Route: 048
  4. TOPAMAX [Concomitant]
     Active Substance: TOPIRAMATE
     Dosage: UNK
  5. TRIKAFTA [Suspect]
     Active Substance: ELEXACAFTOR\IVACAFTOR\TEZACAFTOR
     Indication: CYSTIC FIBROSIS
     Dosage: 100 MG ELEXACAFTOR/ 50 MG TEZACAFTOR/ 75 MG IVACAFTOR; 150MG IVACAFTOR, BID
     Route: 048
     Dates: start: 20191202
  6. LEVALBUTEROL HCL [Concomitant]
     Active Substance: LEVALBUTEROL HYDROCHLORIDE
     Dosage: UNK, BID
  7. CREON [Concomitant]
     Active Substance: PANCRELIPASE AMYLASE\PANCRELIPASE LIPASE\PANCRELIPASE PROTEASE
     Dosage: 36/114/180 K
  8. LANSOPRAZOLE. [Concomitant]
     Active Substance: LANSOPRAZOLE
     Dosage: 15 MG
     Route: 048
  9. VITAMIN D3 [Concomitant]
     Active Substance: CHOLECALCIFEROL
     Dosage: UNK
     Route: 048
  10. ONFI [Concomitant]
     Active Substance: CLOBAZAM
     Dosage: 10 MG, SINGLE
     Route: 048
  11. SODIUM CHLORIDE. [Concomitant]
     Active Substance: SODIUM CHLORIDE
     Dosage: 7%, BID
  12. VITAMIN C [Concomitant]
     Active Substance: ASCORBIC ACID
     Dosage: 1000MG
     Route: 048
  13. MIRALAX [Concomitant]
     Active Substance: POLYETHYLENE GLYCOL 3350
     Dosage: 17 GRAM DOSE POWDER, BID
     Route: 048
  14. NASACORT [Concomitant]
     Active Substance: TRIAMCINOLONE ACETONIDE
     Dosage: 55 MCG
  15. MELATONIN [Concomitant]
     Active Substance: MELATONIN
     Dosage: 10 MG
  16. TOBI [Concomitant]
     Active Substance: TOBRAMYCIN
     Dosage: UNK
  17. ZENPEP [Concomitant]
     Active Substance: PANCRELIPASE AMYLASE\PANCRELIPASE LIPASE\PANCRELIPASE PROTEASE
     Dosage: 200 MG
  18. CAYSTON [Concomitant]
     Active Substance: AZTREONAM
     Dosage: 75MG, TID
  19. AZELASTINE. [Concomitant]
     Active Substance: AZELASTINE HYDROCHLORIDE
     Dosage: 137 MCG SPRAY
  20. PULMOZYME [Concomitant]
     Active Substance: DORNASE ALFA
     Dosage: UNK
  21. OMEGA 3 [DOCOSAHEXAENOIC ACID;EICOSAPENTAENOIC ACID] [Concomitant]
     Active Substance: DOCONEXENT\ICOSAPENT
     Dosage: UNK

REACTIONS (2)
  - Influenza [Recovered/Resolved]
  - Infective pulmonary exacerbation of cystic fibrosis [Unknown]

NARRATIVE: CASE EVENT DATE: 201912
